FAERS Safety Report 9054146 (Version 2)
Quarter: 2013Q1

REPORT INFORMATION
  Report Type: Report from Study
  Country: US (occurrence: US)
  Receive Date: 20130208
  Receipt Date: 20130306
  Transmission Date: 20140127
  Serious: Yes (Hospitalization)
  Sender: FDA-Public Use
  Company Number: US-US-EMD SERONO, INC.-7191733

PATIENT
  Age: 56 None
  Sex: Male

DRUGS (1)
  1. REBIF [Suspect]
     Indication: MULTIPLE SCLEROSIS
     Route: 058
     Dates: start: 20111012

REACTIONS (7)
  - Influenza [Recovered/Resolved]
  - Fall [Not Recovered/Not Resolved]
  - Gait disturbance [Unknown]
  - Malaise [Unknown]
  - Pain [Unknown]
  - Feeling abnormal [Not Recovered/Not Resolved]
  - Injection site haemorrhage [Not Recovered/Not Resolved]
